FAERS Safety Report 4827973-7 (Version None)
Quarter: 2005Q4

REPORT INFORMATION
  Report Type: 
  Country: None (occurrence: None)
  Receive Date: 20051115
  Receipt Date: 20051104
  Transmission Date: 20060501
  Serious: Yes (Hospitalization)
  Sender: FDA-Public Use
  Company Number: HR-AMGEN-UK156727

PATIENT
  Age: 31 Year
  Sex: Female

DRUGS (3)
  1. NEUPOGEN [Suspect]
     Indication: AGRANULOCYTOSIS
     Route: 058
     Dates: start: 20050607, end: 20050607
  2. CISPLATIN [Concomitant]
     Route: 042
     Dates: start: 20050605, end: 20050607
  3. TRAMADOL HCL [Concomitant]
     Route: 048
     Dates: start: 20050603, end: 20050608

REACTIONS (4)
  - DYSPNOEA [None]
  - NAUSEA [None]
  - URTICARIA [None]
  - URTICARIA GENERALISED [None]
